FAERS Safety Report 4886802-6 (Version None)
Quarter: 2006Q1

REPORT INFORMATION
  Report Type: 
  Country: None (occurrence: None)
  Receive Date: 20060119
  Receipt Date: 20060119
  Transmission Date: 20060701
  Serious: Yes (Hospitalization)
  Sender: FDA-Public Use
  Company Number: None

PATIENT
  Age: 52 Year
  Sex: Male
  Weight: 91 kg

DRUGS (2)
  1. PRINIVIL [Suspect]
     Indication: HYPERTENSION
     Dosage: 10MG DAILY  PO
     Route: 048
     Dates: start: 20060102, end: 20060105
  2. PROPOFOL [Suspect]
     Indication: ENDOSCOPY UPPER GASTROINTESTINAL TRACT
     Dosage: 50MG   STAT    IV BOLUS
     Route: 040
     Dates: start: 20060106, end: 20060106

REACTIONS (12)
  - ANAPHYLACTIC REACTION [None]
  - ASPIRATION [None]
  - BRADYCARDIA [None]
  - CARDIO-RESPIRATORY ARREST [None]
  - DYSPNOEA [None]
  - HAEMORRHAGE [None]
  - OEDEMA [None]
  - OXYGEN SATURATION DECREASED [None]
  - POST PROCEDURAL COMPLICATION [None]
  - RESPIRATORY DEPRESSION [None]
  - SECRETION DISCHARGE [None]
  - SWOLLEN TONGUE [None]
